FAERS Safety Report 16087591 (Version 1)
Quarter: 2019Q1

REPORT INFORMATION
  Report Type: Spontaneous
  Country: NL (occurrence: NL)
  Receive Date: 20190319
  Receipt Date: 20190319
  Transmission Date: 20190418
  Serious: Yes (Other)
  Sender: FDA-Public Use
  Company Number: NL-AUROBINDO-AUR-APL-2019-013381

PATIENT

DRUGS (1)
  1. PAROXETINE FILM-COATED TABLET [Suspect]
     Active Substance: PAROXETINE
     Indication: ANXIETY DISORDER
     Dosage: 20 MILLIGRAM
     Route: 065
     Dates: start: 200007, end: 200412

REACTIONS (12)
  - Restlessness [Unknown]
  - Epilepsy [Unknown]
  - Hallucination [Unknown]
  - Headache [Unknown]
  - Cardiac disorder [Unknown]
  - Aggression [Unknown]
  - Hyperhidrosis [Unknown]
  - Imprisonment [Unknown]
  - Tremor [Unknown]
  - Suicide attempt [Unknown]
  - Intentional self-injury [Unknown]
  - Suicidal ideation [Unknown]

NARRATIVE: CASE EVENT DATE: 200203
